FAERS Safety Report 7100306-1 (Version None)
Quarter: 2010Q4

REPORT INFORMATION
  Report Type: 
  Country: None (occurrence: None)
  Receive Date: 20101112
  Receipt Date: 20101104
  Transmission Date: 20110411
  Serious: Yes (Other)
  Sender: FDA-Public Use
  Company Number: ES-GILEAD-E2B_00000900

PATIENT
  Age: 55 Year
  Sex: Male
  Weight: 100 kg

DRUGS (5)
  1. TRUVADA [Suspect]
     Indication: HIV INFECTION
     Route: 048
     Dates: start: 20090112, end: 20090921
  2. KALETRA [Suspect]
     Indication: HIV INFECTION
     Route: 048
     Dates: start: 20090112
  3. KIVEXA [Concomitant]
  4. COMBIVIR [Concomitant]
  5. SEPTRIN [Concomitant]
     Dates: start: 20090921

REACTIONS (1)
  - TUBULOINTERSTITIAL NEPHRITIS [None]
